FAERS Safety Report 22304680 (Version 1)
Quarter: 2023Q2

REPORT INFORMATION
  Report Type: Spontaneous
  Country: CZ (occurrence: CZ)
  Receive Date: 20230510
  Receipt Date: 20230510
  Transmission Date: 20230721
  Serious: Yes (Other)
  Sender: FDA-Public Use
  Company Number: CZ-002147023-NVSC2023CZ104117

PATIENT

DRUGS (7)
  1. RUXOLITINIB [Suspect]
     Active Substance: RUXOLITINIB
     Indication: Chronic graft versus host disease
     Dosage: 2X5 MG, QD
     Route: 065
     Dates: start: 201808, end: 202203
  2. METHOTREXATE [Suspect]
     Active Substance: METHOTREXATE
     Indication: Chronic graft versus host disease
     Dosage: 2X3 MG/M2
     Route: 065
     Dates: start: 201803
  3. METHOTREXATE [Suspect]
     Active Substance: METHOTREXATE
     Dosage: 8X5 MG/M2
     Route: 065
     Dates: end: 201905
  4. CYCLOPHOSPHAMIDE [Concomitant]
     Active Substance: CYCLOPHOSPHAMIDE
     Indication: Chronic graft versus host disease
     Dosage: 10X1 G/M2
     Route: 065
     Dates: start: 201909, end: 202005
  5. CYCLOPHOSPHAMIDE [Concomitant]
     Active Substance: CYCLOPHOSPHAMIDE
     Indication: Skin irritation
  6. CYCLOPHOSPHAMIDE [Concomitant]
     Active Substance: CYCLOPHOSPHAMIDE
     Indication: Mucosal disorder
  7. CYCLOPHOSPHAMIDE [Concomitant]
     Active Substance: CYCLOPHOSPHAMIDE
     Indication: Mobility decreased

REACTIONS (6)
  - Osteonecrosis [Unknown]
  - Lichen planus [Unknown]
  - Radiation induced encephalopathy [Unknown]
  - Infection [Unknown]
  - Osteosclerosis [Unknown]
  - Osteoporosis [Unknown]

NARRATIVE: CASE EVENT DATE: 20180801
